FAERS Safety Report 9103421 (Version 1)
Quarter: 2013Q1

REPORT INFORMATION
  Report Type: Spontaneous
  Country: IN (occurrence: None)
  Receive Date: 20130125
  Receipt Date: 20130125
  Transmission Date: 20140127
  Serious: Yes (Other)
  Sender: FDA-Public Use
  Company Number: IN-1196247

PATIENT
  Age: 65 Year
  Sex: Male

DRUGS (3)
  1. PREDNISOLONE ACETATE [Suspect]
     Indication: POSTOPERATIVE CARE
     Route: 047
  2. VIGAMOX [Suspect]
     Indication: POSTOPERATIVE CARE
     Route: 047
  3. CYCLOPENTOLATE [Concomitant]

REACTIONS (5)
  - Necrotising scleritis [None]
  - Ulcerative keratitis [None]
  - No therapeutic response [None]
  - Post procedural complication [None]
  - Disease recurrence [None]
